FAERS Safety Report 8229619-7 (Version None)
Quarter: 2012Q1

REPORT INFORMATION
  Report Type: 
  Country: None (occurrence: None)
  Receive Date: 20120322
  Receipt Date: 20120314
  Transmission Date: 20120608
  Serious: Yes (Other)
  Sender: FDA-Public Use
  Company Number: PHHY2011MX109046

PATIENT
  Sex: Female

DRUGS (2)
  1. AMFEPRAMONE [Concomitant]
     Indication: OVERWEIGHT
     Dosage: 1 DF, DAILY
     Dates: start: 20111118
  2. EXFORGE [Suspect]
     Indication: HYPERTENSION
     Dosage: 1 DF, (160/5MG) DAILY
     Dates: start: 20111120, end: 20111213

REACTIONS (10)
  - MATERNAL EXPOSURE DURING PREGNANCY [None]
  - DIZZINESS [None]
  - OBESITY [None]
  - HYPOTHYROIDISM [None]
  - NAUSEA [None]
  - MUSCLE SPASMS [None]
  - GESTATIONAL DIABETES [None]
  - ABORTION [None]
  - VAGINAL HAEMORRHAGE [None]
  - HYPERTENSION [None]
